FAERS Safety Report 7519901-0 (Version None)
Quarter: 2011Q2

REPORT INFORMATION
  Report Type: 
  Country: None (occurrence: None)
  Receive Date: 20110602
  Receipt Date: 20110523
  Transmission Date: 20111010
  Serious: Yes (Death)
  Sender: FDA-Public Use
  Company Number: JP-ACTELION-A-CH2010-41633

PATIENT
  Age: 77 Year
  Sex: Female

DRUGS (6)
  1. NITRIC OXIDE [Concomitant]
  2. SILDENAFIL CITRATE [Concomitant]
  3. EPOPROSTENOL SODIUM [Concomitant]
  4. TRACLEER [Suspect]
     Indication: PULMONARY ARTERIAL HYPERTENSION
     Dosage: 62.5 MG, BID
     Route: 048
     Dates: start: 20100101, end: 20100101
  5. TRACLEER [Suspect]
     Dosage: 125 MG, BID
     Route: 048
     Dates: start: 20100101, end: 20101014
  6. OXYGEN [Concomitant]

REACTIONS (4)
  - PANCREATIC CARCINOMA METASTATIC [None]
  - METASTASES TO LIVER [None]
  - PANCREATIC CARCINOMA [None]
  - CONCOMITANT DISEASE AGGRAVATED [None]
